FAERS Safety Report 7521734-6 (Version None)
Quarter: 2011Q2

REPORT INFORMATION
  Report Type: 
  Country: None (occurrence: None)
  Receive Date: 20110524
  Receipt Date: 20110513
  Transmission Date: 20111010
  Serious: Yes (Hospitalization, Other)
  Sender: FDA-Public Use
  Company Number: 2010SP015869

PATIENT
  Age: 40 Year
  Sex: Female
  Weight: 68.0396 kg

DRUGS (4)
  1. TOPAMAX [Concomitant]
  2. NUVARING [Suspect]
     Indication: CONTRACEPTION
     Dates: start: 20080227, end: 20080701
  3. EFFEXOR [Concomitant]
  4. BUTALBITAL [Concomitant]

REACTIONS (8)
  - ATELECTASIS [None]
  - PLEURAL EFFUSION [None]
  - PULMONARY EMBOLISM [None]
  - FEMALE STERILISATION [None]
  - NEOPLASM [None]
  - UTERINE HAEMORRHAGE [None]
  - LUNG INFILTRATION [None]
  - PULMONARY INFARCTION [None]
